FAERS Safety Report 8805386 (Version 2)
Quarter: 2012Q4

REPORT INFORMATION
  Report Type: 
  Country: US (occurrence: US)
  Receive Date: 20120924
  Receipt Date: 20121017
  Transmission Date: 20130627
  Serious: No
  Sender: FDA-Public Use
  Company Number: US-TEVA-360338USA

PATIENT
  Sex: Female
  Weight: 77.18 kg

DRUGS (2)
  1. PROAIR HFA [Suspect]
     Dosage: 360 Microgram Daily;
     Route: 055
  2. XOPENEX [Concomitant]

REACTIONS (1)
  - Bronchitis [Not Recovered/Not Resolved]
